FAERS Safety Report 7605506 (Version 2)
Quarter: 2013Q2

REPORT INFORMATION
  Report Type: Spontaneous
  Country: AT (occurrence: AT)
  Receive Date: 20100924
  Receipt Date: 20130522
  Transmission Date: 20140414
  Serious: Yes (Other)
  Sender: FDA-Public Use
  Company Number: AT-ROCHE-727721

PATIENT
  Age: 54 Year
  Sex: Male

DRUGS (4)
  1. AVASTIN [Suspect]
     Indication: GLIOBLASTOMA MULTIFORME
     Route: 042
  2. AVASTIN [Suspect]
     Route: 042
  3. AVASTIN [Suspect]
     Dosage: RESTARTED THERAPY
     Route: 042
  4. CAMPTO [Suspect]
     Indication: GLIOBLASTOMA MULTIFORME
     Route: 042
     Dates: start: 20080521, end: 20080911

REACTIONS (1)
  - Musculoskeletal pain [Recovered/Resolved]
